FAERS Safety Report 8584282-0 (Version None)
Quarter: 2012Q3

REPORT INFORMATION
  Report Type: 
  Country: None (occurrence: None)
  Receive Date: 20120810
  Receipt Date: 20120801
  Transmission Date: 20120928
  Serious: Yes (Hospitalization)
  Sender: FDA-Public Use
  Company Number: DE-BIOGENIDEC-2012BI028701

PATIENT
  Age: 46 Year
  Sex: Female
  Weight: 70 kg

DRUGS (1)
  1. AVONEX [Suspect]
     Indication: MULTIPLE SCLEROSIS
     Route: 030
     Dates: start: 20040101

REACTIONS (6)
  - EXTRASYSTOLES [None]
  - FATIGUE [None]
  - BRADYCARDIA [None]
  - BALANCE DISORDER [None]
  - HYPOAESTHESIA [None]
  - GAIT DISTURBANCE [None]
